FAERS Safety Report 22605367 (Version 1)
Quarter: 2023Q2

REPORT INFORMATION
  Report Type: Spontaneous
  Country: JP (occurrence: None)
  Receive Date: 20230615
  Receipt Date: 20230615
  Transmission Date: 20230722
  Serious: Yes (Hospitalization)
  Sender: FDA-Public Use
  Company Number: 2023A135711

PATIENT
  Age: 81 Year
  Sex: Male

DRUGS (5)
  1. SAPHNELO [Suspect]
     Active Substance: ANIFROLUMAB-FNIA
     Indication: Systemic lupus erythematosus
     Dosage: DOSE UNKNOWN
     Route: 041
     Dates: end: 2022
  2. SAPHNELO [Suspect]
     Active Substance: ANIFROLUMAB-FNIA
     Indication: Systemic lupus erythematosus
     Dosage: DOSE UNKNOWN
     Route: 041
     Dates: start: 20221029
  3. AZATHIOPRINE [Concomitant]
     Active Substance: AZATHIOPRINE
     Indication: Lupus hepatitis
     Dosage: DOSE UNKNOWN
     Route: 065
     Dates: start: 202205
  4. PREDONINE [Concomitant]
     Active Substance: PREDNISOLONE
     Indication: Lupus hepatitis
     Dosage: DOSE UNKNOWN
     Route: 065
     Dates: start: 202205
  5. CELLCEPT [Concomitant]
     Active Substance: MYCOPHENOLATE MOFETIL
     Dosage: DOSE UNKNOWN
     Route: 065

REACTIONS (5)
  - Infective tenosynovitis [Unknown]
  - Staphylococcal infection [Unknown]
  - Rash [Recovered/Resolved]
  - Malaise [Unknown]
  - Hepatic function abnormal [Recovered/Resolved]

NARRATIVE: CASE EVENT DATE: 20220525
